FAERS Safety Report 9371358 (Version 1)
Quarter: 2013Q2

REPORT INFORMATION
  Report Type: Spontaneous
  Country: US (occurrence: US)
  Receive Date: 20130627
  Receipt Date: 20130627
  Transmission Date: 20140414
  Serious: No
  Sender: FDA-Public Use
  Company Number: US-JNJFOC-20130522015

PATIENT
  Sex: Female
  Weight: 68.04 kg

DRUGS (3)
  1. INVEGA SUSTENNA [Suspect]
     Indication: BIPOLAR DISORDER
     Route: 030
     Dates: start: 2011
  2. TOPIRAMATE [Suspect]
     Indication: MOOD SWINGS
     Route: 048
     Dates: start: 2011
  3. SEROQUEL [Suspect]
     Indication: PRODUCT USED FOR UNKNOWN INDICATION
     Route: 065
     Dates: start: 2011

REACTIONS (2)
  - Breast discharge [Not Recovered/Not Resolved]
  - Blood prolactin increased [Not Recovered/Not Resolved]
